FAERS Safety Report 18439541 (Version 1)
Quarter: 2020Q4

REPORT INFORMATION
  Report Type: Spontaneous
  Country: GB (occurrence: GB)
  Receive Date: 20201028
  Receipt Date: 20201028
  Transmission Date: 20210114
  Serious: Yes (Life-Threatening, Hospitalization, Other)
  Sender: FDA-Public Use
  Company Number: GB-SCIEGEN-2020SCILIT00353

PATIENT
  Sex: Male

DRUGS (13)
  1. TELMISARTAN. [Concomitant]
     Active Substance: TELMISARTAN
     Indication: PRODUCT USED FOR UNKNOWN INDICATION
  2. VITAMIN K [Interacting]
     Active Substance: PHYTONADIONE
     Indication: COAGULOPATHY
     Route: 065
  3. N-ACETYLCYSTEINE [Interacting]
     Active Substance: ACETYLCYSTEINE
     Indication: COAGULOPATHY
     Route: 065
  4. AMLODIPINE [Concomitant]
     Active Substance: AMLODIPINE BESYLATE
     Indication: PRODUCT USED FOR UNKNOWN INDICATION
     Route: 065
  5. VITAMIN K [Interacting]
     Active Substance: PHYTONADIONE
     Indication: HEPATIC FUNCTION ABNORMAL
  6. METFORMIN HYDROCHLORIDETABLETS [Suspect]
     Active Substance: METFORMIN HYDROCHLORIDE
     Indication: PRODUCT USED FOR UNKNOWN INDICATION
     Dosage: 50-60 G
     Route: 065
  7. N-ACETYLCYSTEINE [Interacting]
     Active Substance: ACETYLCYSTEINE
     Indication: HEPATIC FUNCTION ABNORMAL
  8. NOREPINEPHRINE. [Interacting]
     Active Substance: NOREPINEPHRINE
     Indication: BLOOD PRESSURE MEASUREMENT
     Dosage: 0.1 MICRO G/KG/MIN
     Route: 065
  9. LEVOTHYROXINE. [Suspect]
     Active Substance: LEVOTHYROXINE
     Indication: PRODUCT USED FOR UNKNOWN INDICATION
     Route: 065
  10. HYDROCHLOROTHIAZIDE. [Concomitant]
     Active Substance: HYDROCHLOROTHIAZIDE
     Indication: PRODUCT USED FOR UNKNOWN INDICATION
     Route: 065
  11. VITAMIN K [Interacting]
     Active Substance: PHYTONADIONE
     Indication: MULTIPLE ORGAN DYSFUNCTION SYNDROME
  12. N-ACETYLCYSTEINE [Interacting]
     Active Substance: ACETYLCYSTEINE
     Indication: MULTIPLE ORGAN DYSFUNCTION SYNDROME
  13. BICARBONATE [Interacting]
     Active Substance: SODIUM BICARBONATE
     Indication: BLOOD PRESSURE MEASUREMENT
     Route: 042

REACTIONS (15)
  - Pneumonia [Recovered/Resolved]
  - Confusional state [Recovered/Resolved]
  - Hepatic function abnormal [Recovered/Resolved]
  - Hyperlactacidaemia [Recovered/Resolved]
  - Lactic acidosis [Recovered/Resolved]
  - Agitation [Recovered/Resolved]
  - Multiple organ dysfunction syndrome [Recovered/Resolved]
  - Renal impairment [Recovered/Resolved]
  - Acidosis [Recovered/Resolved]
  - Abdominal pain [Recovered/Resolved]
  - Acute kidney injury [Recovered/Resolved]
  - Metabolic acidosis [Recovered/Resolved]
  - Vomiting [Recovered/Resolved]
  - Overdose [Recovered/Resolved]
  - Coagulopathy [Recovered/Resolved]
